FAERS Safety Report 21231208 (Version 1)
Quarter: 2022Q3

REPORT INFORMATION
  Report Type: Spontaneous
  Country: None (occurrence: KR)
  Receive Date: 20220819
  Receipt Date: 20220819
  Transmission Date: 20221027
  Serious: Yes (Death, Other)
  Sender: FDA-Public Use
  Company Number: KR-Hisun Pharmaceuticals-2132039

PATIENT
  Age: 64 Year
  Sex: Female

DRUGS (4)
  1. DAUNORUBICIN HYDROCHLORIDE [Suspect]
     Active Substance: DAUNORUBICIN HYDROCHLORIDE
     Indication: Acute myeloid leukaemia
  2. ADRIAMYCIN [Suspect]
     Active Substance: DOXORUBICIN HYDROCHLORIDE
  3. CYTARABINE [Suspect]
     Active Substance: CYTARABINE
  4. IDARUBICIN HYDROCHLORIDE [Suspect]
     Active Substance: IDARUBICIN HYDROCHLORIDE

REACTIONS (7)
  - Respiratory failure [Fatal]
  - Shock [Fatal]
  - Pneumonia aspiration [Fatal]
  - Sepsis [Fatal]
  - Toxic leukoencephalopathy [Fatal]
  - Posterior reversible encephalopathy syndrome [Fatal]
  - Acute myeloid leukaemia recurrent [Fatal]
